FAERS Safety Report 25408006 (Version 3)
Quarter: 2025Q3

REPORT INFORMATION
  Report Type: Spontaneous
  Country: US (occurrence: US)
  Receive Date: 20250606
  Receipt Date: 20250729
  Transmission Date: 20251021
  Serious: No
  Sender: TAIHO ONCOLOGY INC
  Company Number: US-TAIHOP-2025-005820

PATIENT
  Sex: Male

DRUGS (1)
  1. LYTGOBI [Suspect]
     Active Substance: FUTIBATINIB
     Indication: Gastric cancer
     Route: 048

REACTIONS (6)
  - Disease progression [Unknown]
  - Illness [Unknown]
  - Dry eye [Unknown]
  - Dry skin [Unknown]
  - Onychomalacia [Unknown]
  - Product use in unapproved indication [Unknown]
